FAERS Safety Report 13026784 (Version 2)
Quarter: 2016Q4

REPORT INFORMATION
  Report Type: Spontaneous
  Country: US (occurrence: US)
  Receive Date: 20161214
  Receipt Date: 20161228
  Transmission Date: 20170207
  Serious: Yes (Other)
  Sender: FDA-Public Use
  Company Number: US-SAOL THERAPEUTICS-2016SAO01198

PATIENT
  Sex: Female
  Weight: 65.76 kg

DRUGS (20)
  1. LIORESAL [Suspect]
     Active Substance: BACLOFEN
     Indication: PARALYSIS
     Dosage: 441.1 ?G, \DAY
     Route: 037
     Dates: start: 20161129
  2. FIBERCHOICE CHEW [Concomitant]
     Dosage: 1 TABLETS, \DAY
     Route: 048
  3. NORINYL 1/35 [Concomitant]
     Dosage: 1 TABLETS, \DAY
     Route: 048
  4. AMITIZA [Concomitant]
     Active Substance: LUBIPROSTONE
     Dosage: 8 ?G, 2X/DAY
     Route: 048
  5. ZOLOFT [Concomitant]
     Active Substance: SERTRALINE HYDROCHLORIDE
     Dosage: 75 MG, \DAY
     Route: 048
  6. MYLANTA ULTIMATE STRENGTH 500-500 M [Concomitant]
     Dosage: 30 ML, AS NEEDED
     Route: 048
  7. SENOKOT-S [Concomitant]
     Active Substance: DOCUSATE SODIUM\SENNOSIDES
     Dosage: 1 TABLETS, 2X/DAY
     Route: 048
  8. FLORASTOR [Concomitant]
     Active Substance: SACCHAROMYCES CEREVISIAE
     Dosage: 250 MG, 2X/DAY
     Route: 048
  9. ZYRTEC [Concomitant]
     Active Substance: CETIRIZINE HYDROCHLORIDE
     Dosage: 10 MG, \DAY
     Route: 048
  10. LIPITOR [Concomitant]
     Active Substance: ATORVASTATIN CALCIUM
     Dosage: 20 MG, \DAY
     Route: 048
  11. COLACE [Concomitant]
     Active Substance: DOCUSATE SODIUM
     Dosage: 100 MG, 1X/DAY
     Route: 048
  12. MACRODANTIN [Concomitant]
     Active Substance: NITROFURANTOIN
     Dosage: 100 MG, \DAY
     Route: 048
  13. MENTHOL/PHENOL [Concomitant]
     Dosage: 1 DOSAGE UNITS, AS NEEDED
     Route: 048
  14. LEVOTHROID [Concomitant]
     Active Substance: LEVOTHYROXINE SODIUM
     Dosage: 50 ?G, 1X/DAY
     Route: 048
  15. SENEXON [Concomitant]
     Active Substance: SENNOSIDES A AND B
     Dosage: 1 TABLETS, 2X/DAY
     Route: 048
  16. PROLOPRIM [Concomitant]
     Active Substance: TRIMETHOPRIM
     Dosage: 100 MG, \DAY
     Route: 048
  17. LIORESAL [Suspect]
     Active Substance: BACLOFEN
     Indication: CEREBRAL PALSY
     Dosage: 441 ?G, \DAY
  18. NOTREL 1-35 [Concomitant]
     Dosage: 1 TABLETS, \DAY
     Route: 048
  19. DITROPAN XL [Concomitant]
     Active Substance: OXYBUTYNIN CHLORIDE
     Dosage: 15 MG, 2X/DAY
     Route: 048
  20. MYRBETRIQ [Concomitant]
     Active Substance: MIRABEGRON
     Dosage: 50 MG, \DAY
     Route: 048

REACTIONS (3)
  - Implant site infection [Recovered/Resolved]
  - Incision site vesicles [Unknown]
  - Cerebrospinal fluid leakage [Recovered/Resolved]

NARRATIVE: CASE EVENT DATE: 2016
